FAERS Safety Report 14807670 (Version 3)
Quarter: 2018Q2

REPORT INFORMATION
  Report Type: Spontaneous
  Country: US (occurrence: US)
  Receive Date: 20180425
  Receipt Date: 20180516
  Transmission Date: 20180711
  Serious: No
  Sender: FDA-Public Use
  Company Number: US-ELI_LILLY_AND_COMPANY-US201804012845

PATIENT
  Sex: Male

DRUGS (5)
  1. ATIVAN [Concomitant]
     Active Substance: LORAZEPAM
     Indication: PRODUCT USED FOR UNKNOWN INDICATION
     Dosage: UNK UNK, UNKNOWN
     Route: 065
  2. ABILIFY [Suspect]
     Active Substance: ARIPIPRAZOLE
     Indication: PRODUCT USED FOR UNKNOWN INDICATION
     Dosage: UNK UNK, UNKNOWN
     Route: 065
  3. ZYPREXA [Suspect]
     Active Substance: OLANZAPINE
     Indication: TOURETTE^S DISORDER
     Dosage: 20 MG, UNKNOWN
     Route: 065
     Dates: start: 2005
  4. ZYPREXA [Suspect]
     Active Substance: OLANZAPINE
     Dosage: 25 UNK, UNK
     Route: 065
  5. OLANZAPINE. [Suspect]
     Active Substance: OLANZAPINE
     Indication: TOURETTE^S DISORDER
     Dosage: UNK, UNKNOWN
     Route: 065

REACTIONS (9)
  - Erectile dysfunction [Unknown]
  - Overdose [Unknown]
  - Premature ejaculation [Unknown]
  - Muscle spasms [Unknown]
  - Off label use [Unknown]
  - Confusional state [Unknown]
  - Memory impairment [Unknown]
  - Palpitations [Unknown]
  - Hypersensitivity [Unknown]
